FAERS Safety Report 6125351-4 (Version None)
Quarter: 2009Q1

REPORT INFORMATION
  Report Type: 
  Country: None (occurrence: None)
  Receive Date: 20090319
  Receipt Date: 20090319
  Transmission Date: 20090719
  Serious: Yes (Other)
  Sender: FDA-Public Use
  Company Number: None

PATIENT
  Age: 50 Year
  Sex: Male

DRUGS (1)
  1. HYDROGEN PEROXIDE SOLUTION (FORMULATION UNKNOWN) (HYDROGEN PEROXIDE SO [Suspect]
     Dates: start: 20090208

REACTIONS (3)
  - DRUG INEFFECTIVE [None]
  - GINGIVAL DISORDER [None]
  - GINGIVAL PAIN [None]
